FAERS Safety Report 9832124 (Version 1)
Quarter: 2014Q1

REPORT INFORMATION
  Report Type: Spontaneous
  Country: US (occurrence: US)
  Receive Date: 20140121
  Receipt Date: 20140121
  Transmission Date: 20141002
  Serious: Yes (Hospitalization, Disabling, Other)
  Sender: FDA-Public Use
  Company Number: US-SA-2014SA007763

PATIENT
  Sex: Female
  Weight: 79.37 kg

DRUGS (6)
  1. PLAVIX [Suspect]
     Indication: CEREBROVASCULAR ACCIDENT
     Route: 048
  2. CLOPIDOGREL BISULFATE [Suspect]
     Route: 065
  3. FIORICET [Concomitant]
  4. ALL OTHER THERAPEUTIC PRODUCTS [Concomitant]
  5. LISINOPRIL [Concomitant]
  6. LIPITOR [Concomitant]

REACTIONS (6)
  - Fall [Unknown]
  - Pelvic fracture [Unknown]
  - Spinal fracture [Unknown]
  - Nerve injury [Unknown]
  - Headache [Unknown]
  - Arthropathy [Unknown]
